FAERS Safety Report 8129821-9 (Version None)
Quarter: 2012Q1

REPORT INFORMATION
  Report Type: 
  Country: None (occurrence: None)
  Receive Date: 20120210
  Receipt Date: 20120210
  Transmission Date: 20120608
  Serious: No
  Sender: FDA-Public Use
  Company Number: None

PATIENT
  Age: 60 Year
  Sex: Female
  Weight: 86.182 kg

DRUGS (2)
  1. COUMADIN [Concomitant]
     Dosage: 7.5 MG
     Route: 048
  2. COUMADIN [Suspect]
     Indication: FACTOR V LEIDEN MUTATION
     Dosage: 5 MG
     Route: 048
     Dates: start: 20101001, end: 20120209

REACTIONS (6)
  - DRY SKIN [None]
  - ALOPECIA [None]
  - GAIT DISTURBANCE [None]
  - RHINORRHOEA [None]
  - TINNITUS [None]
  - ARTHRALGIA [None]
